FAERS Safety Report 20632195 (Version 2)
Quarter: 2022Q1

REPORT INFORMATION
  Report Type: Spontaneous
  Country: FR (occurrence: FR)
  Receive Date: 20220324
  Receipt Date: 20220328
  Transmission Date: 20220424
  Serious: Yes (Life-Threatening, Other)
  Sender: FDA-Public Use
  Company Number: None

PATIENT
  Age: 19 Year
  Sex: Female

DRUGS (2)
  1. TRAMADOL [Suspect]
     Active Substance: TRAMADOL
     Indication: Product used for unknown indication
     Dosage: 100 MILLIGRAM, TOTAL, 260 TAB
     Route: 048
     Dates: start: 20220126, end: 20220126
  2. ACETAMINOPHEN\CODEINE PHOSPHATE [Suspect]
     Active Substance: ACETAMINOPHEN\CODEINE PHOSPHATE
     Indication: Product used for unknown indication
     Dosage: UNK, TOTAL (96 TAB)
     Route: 048
     Dates: start: 20220126, end: 20220126

REACTIONS (3)
  - Hypercapnia [Recovering/Resolving]
  - Poisoning deliberate [Recovered/Resolved]
  - Coma [Recovering/Resolving]

NARRATIVE: CASE EVENT DATE: 20220126
